FAERS Safety Report 7550693-5 (Version None)
Quarter: 2011Q2

REPORT INFORMATION
  Report Type: 
  Country: None (occurrence: None)
  Receive Date: 20110609
  Receipt Date: 20110524
  Transmission Date: 20111010
  Serious: Yes (Hospitalization, Other)
  Sender: FDA-Public Use
  Company Number: 2011MA006378

PATIENT
  Age: 55 Year
  Sex: Male

DRUGS (10)
  1. HYDROCHLOROTHIAZIDE [Concomitant]
  2. DOBUTAMINE HCL [Concomitant]
  3. CAPTOPRIL [Concomitant]
  4. LABETALOL HCL [Concomitant]
  5. ESOMEPRAZOLE MAGNESIUM [Concomitant]
  6. LORAZEPAM [Concomitant]
  7. VASOPRESSIN [Concomitant]
  8. NOREPINEPHRINE BITARTRATE [Concomitant]
  9. PHENYTOIN [Suspect]
     Indication: HYPERTENSION
     Dosage: 1 G; 1X; IV
     Route: 042
  10. ALBUMIN (HUMAN) [Concomitant]

REACTIONS (5)
  - THROMBOCYTOPENIA [None]
  - RENAL FAILURE ACUTE [None]
  - HYPOTENSION [None]
  - ISCHAEMIC HEPATITIS [None]
  - PNEUMONIA [None]
